FAERS Safety Report 9642453 (Version 2)
Quarter: 2014Q2

REPORT INFORMATION
  Report Type: Spontaneous
  Country: MX (occurrence: MX)
  Receive Date: 20131024
  Receipt Date: 20140522
  Transmission Date: 20141212
  Serious: Yes (Hospitalization)
  Sender: FDA-Public Use
  Company Number: MX-BRISTOL-MYERS SQUIBB COMPANY-19588136

PATIENT
  Age: 52 Year
  Sex: Female

DRUGS (1)
  1. OHRENCIA [Suspect]
     Indication: RHEUMATOID ARTHRITIS
     Dosage: 1/4 WEEK
     Route: 042
     Dates: start: 20130503

REACTIONS (2)
  - Peritonitis [Recovering/Resolving]
  - Off label use [Unknown]
